FAERS Safety Report 8415400-2 (Version None)
Quarter: 2012Q2

REPORT INFORMATION
  Report Type: 
  Country: None (occurrence: None)
  Receive Date: 20120606
  Receipt Date: 20120525
  Transmission Date: 20120825
  Serious: Yes (Other)
  Sender: FDA-Public Use
  Company Number: DE-JNJFOC-20120308244

PATIENT
  Sex: Male

DRUGS (2)
  1. ZYTIGA [Suspect]
     Indication: PROSTATE CANCER
     Route: 048
     Dates: start: 20120120, end: 20120413
  2. DENOSUMAB [Suspect]
     Indication: PROSTATE CANCER
     Route: 058

REACTIONS (5)
  - ARTHROPATHY [None]
  - ARTHRALGIA [None]
  - OEDEMA PERIPHERAL [None]
  - JOINT SWELLING [None]
  - BACK PAIN [None]
